FAERS Safety Report 25963007 (Version 2)
Quarter: 2025Q4

REPORT INFORMATION
  Report Type: Spontaneous
  Country: US (occurrence: US)
  Receive Date: 20251027
  Receipt Date: 20251119
  Transmission Date: 20260118
  Serious: Yes (Other)
  Sender: EISAI
  Company Number: US-Eisai-EC-2025-198117

PATIENT
  Age: 86 Year
  Sex: Female
  Weight: 73.6 kg

DRUGS (1)
  1. LEQEMBI [Suspect]
     Active Substance: LECANEMAB-IRMB
     Indication: Product used for unknown indication
     Dosage: DOSE UNKNOWN.
     Route: 042
     Dates: start: 20250310

REACTIONS (2)
  - Deep vein thrombosis [Recovered/Resolved]
  - Atrial fibrillation [Recovered/Resolved]

NARRATIVE: CASE EVENT DATE: 20250515
